FAERS Safety Report 9821067 (Version 2)
Quarter: 2014Q1

REPORT INFORMATION
  Report Type: Spontaneous
  Country: US (occurrence: US)
  Receive Date: 20140116
  Receipt Date: 20140207
  Transmission Date: 20141002
  Serious: Yes (Hospitalization)
  Sender: FDA-Public Use
  Company Number: US-B.I. PHARMACEUTICALS,INC./RIDGEFIELD-2014-BI-01108BP

PATIENT
  Age: 59 Year
  Sex: Male
  Weight: 186.88 kg

DRUGS (4)
  1. PRADAXA [Suspect]
     Indication: ATRIAL FIBRILLATION
     Dosage: 150 MG
     Dates: start: 20110812, end: 20121024
  2. LISINOPRIL [Concomitant]
     Dosage: 2.5 MG
  3. METOPROLOL [Concomitant]
     Dosage: 200 MG
  4. FUROSEMIDE [Concomitant]
     Dosage: 160 MG

REACTIONS (1)
  - Lower gastrointestinal haemorrhage [Unknown]
